FAERS Safety Report 4598901-7 (Version None)
Quarter: 2005Q1

REPORT INFORMATION
  Report Type: 
  Country: None (occurrence: None)
  Receive Date: 20050302
  Receipt Date: 20050203
  Transmission Date: 20050727
  Serious: Yes (Death, Other)
  Sender: FDA-Public Use
  Company Number: M04-341-112

PATIENT
  Age: 50 Year
  Sex: Female
  Weight: 45 kg

DRUGS (21)
  1. VELCADE [Suspect]
     Indication: MULTIPLE MYELOMA
     Dosage: SEE IMAGE
     Route: 040
     Dates: start: 20040309, end: 20040409
  2. VELCADE [Suspect]
     Indication: MULTIPLE MYELOMA
     Dosage: SEE IMAGE
     Route: 040
     Dates: start: 20040406, end: 20040514
  3. VELCADE [Suspect]
     Indication: MULTIPLE MYELOMA
     Dosage: SEE IMAGE
     Route: 040
     Dates: start: 20040514, end: 20040604
  4. . [Concomitant]
  5. . [Concomitant]
  6. STOOL SOFTENER [Concomitant]
  7. STARLIX [Concomitant]
  8. COMPAZINE [Concomitant]
  9. PULMICORT [Concomitant]
  10. ALBUTEROL [Concomitant]
  11. SYNTHROID [Concomitant]
  12. DURAGESIC-100 [Concomitant]
  13. OXYCODONE TABLET [Concomitant]
  14. NEURONTIN [Concomitant]
  15. THALIDOMIDE TABLET [Concomitant]
  16. VITAMIN E [Concomitant]
  17. EVISTA [Concomitant]
  18. PIOGLITAZONE [Concomitant]
  19. DILANTIN [Concomitant]
  20. NADOLOL [Concomitant]
  21. MINOXIDIL [Concomitant]

REACTIONS (46)
  - ANAEMIA [None]
  - ARTHRALGIA [None]
  - ASTHENIA [None]
  - BACK PAIN [None]
  - BIOPSY BONE MARROW ABNORMAL [None]
  - BLOOD GLUCOSE INCREASED [None]
  - BLOOD POTASSIUM INCREASED [None]
  - BLOOD PRESSURE DECREASED [None]
  - BREATH SOUNDS DECREASED [None]
  - CARDIOMEGALY [None]
  - CHEST PAIN [None]
  - COMA [None]
  - CONDITION AGGRAVATED [None]
  - CONJUNCTIVAL HAEMORRHAGE [None]
  - CONJUNCTIVITIS [None]
  - CONSTIPATION [None]
  - CRACKLES LUNG [None]
  - CREPITATIONS [None]
  - DECREASED APPETITE [None]
  - DECUBITUS ULCER [None]
  - DISEASE PROGRESSION [None]
  - DYSPNOEA [None]
  - FATIGUE [None]
  - FLUID OVERLOAD [None]
  - HEPATITIS [None]
  - HYPERHIDROSIS [None]
  - HYPERKALAEMIA [None]
  - HYPOGLYCAEMIA [None]
  - LYMPHADENOPATHY [None]
  - MALIGNANT NEOPLASM PROGRESSION [None]
  - MULTIPLE MYELOMA [None]
  - MUSCLE SPASMS [None]
  - NAIL BED BLEEDING [None]
  - OXYGEN SATURATION DECREASED [None]
  - PAIN [None]
  - PANCYTOPENIA [None]
  - PELVIC FRACTURE [None]
  - PLATELET COUNT DECREASED [None]
  - PULMONARY CONGESTION [None]
  - PYREXIA [None]
  - RENAL FAILURE [None]
  - RESPIRATORY DISORDER [None]
  - RESPIRATORY FAILURE [None]
  - TREATMENT NONCOMPLIANCE [None]
  - VAGINAL HAEMORRHAGE [None]
  - WHEEZING [None]
